FAERS Safety Report 15954793 (Version 1)
Quarter: 2019Q1

REPORT INFORMATION
  Report Type: Report from Study
  Country: FR (occurrence: FR)
  Receive Date: 20190213
  Receipt Date: 20190213
  Transmission Date: 20190417
  Serious: Yes (Other)
  Sender: FDA-Public Use
  Company Number: FR-FERRINGPH-2019FE00493

PATIENT

DRUGS (1)
  1. DESMOPRESSIN [Suspect]
     Active Substance: DESMOPRESSIN
     Indication: ENURESIS
     Dosage: 300 UNK, UNK
     Route: 065

REACTIONS (4)
  - Seizure [Unknown]
  - Personality change [Unknown]
  - Mood swings [Unknown]
  - Burning sensation [Unknown]
